FAERS Safety Report 5774722-4 (Version None)
Quarter: 2008Q2

REPORT INFORMATION
  Report Type: 
  Country: None (occurrence: None)
  Receive Date: 20080617
  Receipt Date: 20080610
  Transmission Date: 20081010
  Serious: Yes (Other)
  Sender: FDA-Public Use
  Company Number: ES-RANBAXY-2008RR-15820

PATIENT

DRUGS (1)
  1. MINOCYCLINE HCL [Suspect]

REACTIONS (1)
  - JUVENILE ARTHRITIS [None]
